FAERS Safety Report 8094801-9 (Version None)
Quarter: 2012Q1

REPORT INFORMATION
  Report Type: 
  Country: None (occurrence: None)
  Receive Date: 20120129
  Receipt Date: 20111209
  Transmission Date: 20120608
  Serious: No
  Sender: FDA-Public Use
  Company Number: US-ABBOTT-11P-163-0882574-00

PATIENT
  Age: 53 Year
  Sex: Male

DRUGS (3)
  1. HUMIRA [Suspect]
     Dosage: 1-40 MG PEN
     Dates: start: 20111206, end: 20111206
  2. HUMIRA [Suspect]
  3. HUMIRA [Suspect]
     Indication: PSORIATIC ARTHROPATHY
     Dosage: 2-40 MG PENS ON DAY 1
     Dates: start: 20111128, end: 20111128

REACTIONS (1)
  - DRUG ADMINISTRATION ERROR [None]
